FAERS Safety Report 5054113-4 (Version None)
Quarter: 2006Q3

REPORT INFORMATION
  Report Type: 
  Country: None (occurrence: None)
  Receive Date: 20060718
  Receipt Date: 20060704
  Transmission Date: 20061208
  Serious: Yes (Other)
  Sender: FDA-Public Use
  Company Number: DE-NOVOPROD-254621

PATIENT
  Sex: Female

DRUGS (1)
  1. NOVONORM [Suspect]
     Indication: DIABETES MELLITUS NON-INSULIN-DEPENDENT
     Dosage: .5 MG, QID
     Route: 048

REACTIONS (1)
  - HYPOGLYCAEMIC COMA [None]
